FAERS Safety Report 9664860 (Version 3)
Quarter: 2014Q4

REPORT INFORMATION
  Report Type: Report from Study
  Country: IT (occurrence: IT)
  Receive Date: 20131101
  Receipt Date: 20141016
  Transmission Date: 20150529
  Serious: Yes (Other)
  Sender: FDA-Public Use
  Company Number: IT-ABBVIE-11P-083-0852076-01

PATIENT
  Age: 25 Year
  Sex: Male

DRUGS (5)
  1. HUMIRA [Suspect]
     Active Substance: ADALIMUMAB
     Route: 058
     Dates: end: 20100603
  2. HUMIRA [Suspect]
     Active Substance: ADALIMUMAB
     Indication: CROHN^S DISEASE
     Route: 058
     Dates: start: 20090907, end: 20090907
  3. HUMIRA [Suspect]
     Active Substance: ADALIMUMAB
     Route: 058
  4. METHOTREXATE [Concomitant]
     Active Substance: METHOTREXATE
     Indication: CROHN^S DISEASE
     Dates: start: 20100923
  5. AZATHIOPRINE. [Concomitant]
     Active Substance: AZATHIOPRINE
     Indication: ROUTINE HEALTH MAINTENANCE
     Dates: start: 20020901

REACTIONS (1)
  - Colon cancer [Recovered/Resolved]

NARRATIVE: CASE EVENT DATE: 20101110
